FAERS Safety Report 11766862 (Version 5)
Quarter: 2015Q4

REPORT INFORMATION
  Report Type: Spontaneous
  Country: US (occurrence: US)
  Receive Date: 20151123
  Receipt Date: 20151228
  Transmission Date: 20160304
  Serious: Yes (Disabling, Other)
  Sender: FDA-Public Use
  Company Number: US-AMGEN-USASP2015123299

PATIENT
  Age: 64 Year
  Sex: Male
  Weight: 106.58 kg

DRUGS (8)
  1. NEUPOGEN [Concomitant]
     Active Substance: FILGRASTIM
     Indication: MYELODYSPLASTIC SYNDROME
     Dosage: 480 MCG, TWICE OF WEEKLY
     Route: 058
     Dates: start: 201506, end: 20150805
  2. PROCRIT [Suspect]
     Active Substance: ERYTHROPOIETIN
     Dosage: 60000 UNIT, WEEKLY FOR 3 MONTHS
     Route: 058
     Dates: start: 20150424, end: 20150819
  3. TYLENOL [Suspect]
     Active Substance: ACETAMINOPHEN
     Indication: PREMEDICATION
     Dosage: PRIOR TO INFUSION
     Route: 048
  4. BENADRYL [Concomitant]
     Active Substance: DIPHENHYDRAMINE HYDROCHLORIDE
     Indication: PREMEDICATION
     Dosage: UNK
     Route: 042
  5. ALEVE [Concomitant]
     Active Substance: NAPROXEN SODIUM
     Dosage: UNK
  6. REVLIMID [Concomitant]
     Active Substance: LENALIDOMIDE
     Indication: MYELODYSPLASTIC SYNDROME
     Dosage: 10 MG, UNK
     Dates: start: 20150814, end: 20150930
  7. PROCRIT [Suspect]
     Active Substance: ERYTHROPOIETIN
     Indication: MYELODYSPLASTIC SYNDROME
     Dosage: 40,000 UNITS, WEEKLY FOR 3 MONTHS
     Route: 058
     Dates: start: 20150403, end: 20150417
  8. LASIX [Concomitant]
     Active Substance: FUROSEMIDE
     Dosage: UNK

REACTIONS (13)
  - Transfusion [Unknown]
  - Marrow hyperplasia [Unknown]
  - Aplasia pure red cell [Not Recovered/Not Resolved]
  - Monocytopenia [Unknown]
  - Polychromasia [Unknown]
  - Eosinophilia [Unknown]
  - Normochromic normocytic anaemia [Unknown]
  - Drug ineffective [Recovered/Resolved]
  - Basophilia [Unknown]
  - Thrombocytopenia [Unknown]
  - Diabetes mellitus [Not Recovered/Not Resolved]
  - Off label use [Unknown]
  - Platelet count decreased [Unknown]

NARRATIVE: CASE EVENT DATE: 2015
